FAERS Safety Report 21181128 (Version 4)
Quarter: 2022Q4

REPORT INFORMATION
  Report Type: Spontaneous
  Country: US (occurrence: US)
  Receive Date: 20220806
  Receipt Date: 20221223
  Transmission Date: 20230113
  Serious: No
  Sender: FDA-Public Use
  Company Number: US-SA-SAC20220728000454

PATIENT
  Age: 2 Year
  Sex: Female
  Weight: 16.01 kg

DRUGS (2)
  1. DUPIXENT [Suspect]
     Active Substance: DUPILUMAB
     Indication: Dermatitis atopic
     Dosage: 300 MG, Q4W
     Route: 058
     Dates: start: 20220720
  2. MULTIVITAMIN [ASCORBIC ACID;CALCIUM PANTOTHENATE;CYANOCOBALAMIN;ERGOCA [Concomitant]

REACTIONS (7)
  - Skin fissures [Unknown]
  - Dry skin [Recovering/Resolving]
  - Pruritus [Unknown]
  - Skin exfoliation [Unknown]
  - Rash [Unknown]
  - Eczema [Unknown]
  - Dermatitis atopic [Unknown]

NARRATIVE: CASE EVENT DATE: 20221201
